FAERS Safety Report 7324008-1 (Version None)
Quarter: 2011Q1

REPORT INFORMATION
  Report Type: 
  Country: None (occurrence: None)
  Receive Date: 20110217
  Receipt Date: 20110203
  Transmission Date: 20110831
  Serious: Yes (Hospitalization)
  Sender: FDA-Public Use
  Company Number: 1000018543

PATIENT
  Age: 36 Year
  Sex: Male

DRUGS (7)
  1. FLUANXOL DEPOT (FLUPENTIXOL DECANOATE) (INJECTION) [Suspect]
     Indication: SCHIZOPHRENIA
     Dosage: 40 MG, INTRAMUSCULAR
     Route: 030
     Dates: start: 20100815, end: 20100815
  2. ATORVASTATIN (ATORVASTATIN) [Concomitant]
  3. LEVETIRACETAM [Concomitant]
  4. DIAZEPAM [Concomitant]
  5. OLANZAPINE [Concomitant]
  6. LEXAPRO [Suspect]
     Indication: ANXIETY DISORDER
     Dosage: 40 MG, ONCE, ORAL
     Route: 048
  7. METFORMIN HCL [Concomitant]

REACTIONS (10)
  - OVERDOSE [None]
  - DRUG INTERACTION [None]
  - DRUG INEFFECTIVE [None]
  - NEPHROPATHY TOXIC [None]
  - PARKINSONISM [None]
  - EPISTAXIS [None]
  - EPILEPSY [None]
  - BODY TEMPERATURE FLUCTUATION [None]
  - LOSS OF CONSCIOUSNESS [None]
  - DRUG ADMINISTRATION ERROR [None]
